FAERS Safety Report 5916950-0 (Version None)
Quarter: 2008Q4

REPORT INFORMATION
  Report Type: 
  Country: None (occurrence: None)
  Receive Date: 20081009
  Receipt Date: 20080925
  Transmission Date: 20090506
  Serious: Yes (Other)
  Sender: FDA-Public Use
  Company Number: 2008S1017484

PATIENT
  Age: 23 Year
  Sex: Male
  Weight: 62.1428 kg

DRUGS (1)
  1. LORAZEPAM [Suspect]
     Indication: POST-TRAUMATIC STRESS DISORDER
     Dosage: 1 MG;4 TIMES A DAY;ORAL
     Route: 048
     Dates: start: 20080301

REACTIONS (3)
  - ALANINE AMINOTRANSFERASE INCREASED [None]
  - DRUG EFFECT DECREASED [None]
  - PANIC ATTACK [None]
